FAERS Safety Report 9960161 (Version 2)
Quarter: 2014Q1

REPORT INFORMATION
  Report Type: Report from Study
  Country: PR (occurrence: PR)
  Receive Date: 20140305
  Receipt Date: 20140305
  Transmission Date: 20141002
  Serious: Yes (Hospitalization)
  Sender: FDA-Public Use
  Company Number: PR-ABBVIE-13P-131-1079639-00

PATIENT
  Age: 67 Year
  Sex: Female
  Weight: 49.94 kg

DRUGS (10)
  1. HUMIRA [Suspect]
     Indication: RHEUMATOID ARTHRITIS
     Route: 058
     Dates: start: 2006, end: 201304
  2. PREDNISONE [Concomitant]
     Indication: RHEUMATOID ARTHRITIS
     Route: 048
  3. NEURONTIN [Concomitant]
     Indication: RHEUMATOID ARTHRITIS
     Route: 048
  4. LOSARTAN [Concomitant]
     Indication: HYPERTENSION
     Route: 048
  5. PROTONIX [Concomitant]
     Indication: DYSPEPSIA
     Route: 048
  6. PREMARIN [Concomitant]
     Indication: PROPHYLAXIS
     Route: 048
  7. SINGULAR [Concomitant]
     Indication: PULMONARY FIBROSIS
     Route: 048
  8. CYSTATIN [Concomitant]
     Indication: BLOOD CHOLESTEROL
     Route: 048
  9. ASPIRINE [Concomitant]
     Indication: PROPHYLAXIS
     Route: 048
  10. ADVAIR [Concomitant]
     Indication: FATIGUE
     Route: 048

REACTIONS (4)
  - Bronchitis [Recovered/Resolved]
  - Pulmonary fibrosis [Recovered/Resolved]
  - Epistaxis [Recovered/Resolved]
  - Mouth haemorrhage [Recovered/Resolved]
